FAERS Safety Report 16065344 (Version 3)
Quarter: 2019Q2

REPORT INFORMATION
  Report Type: Spontaneous
  Country: US (occurrence: US)
  Receive Date: 20190313
  Receipt Date: 20190614
  Transmission Date: 20190711
  Serious: No
  Sender: FDA-Public Use
  Company Number: US-GLAXOSMITHKLINE-US2019041427

PATIENT
  Sex: Female

DRUGS (1)
  1. BREO ELLIPTA [Suspect]
     Active Substance: FLUTICASONE FUROATE\VILANTEROL TRIFENATATE
     Indication: MAST CELL ACTIVATION SYNDROME
     Dosage: 1 PUFF(S), QD
     Route: 055

REACTIONS (4)
  - Dyspnoea [Unknown]
  - Product complaint [Unknown]
  - Chest pain [Unknown]
  - Drug ineffective [Unknown]
